FAERS Safety Report 11762774 (Version 1)
Quarter: 2015Q4

REPORT INFORMATION
  Report Type: Spontaneous
  Country: FR (occurrence: FR)
  Receive Date: 20151120
  Receipt Date: 20151120
  Transmission Date: 20160304
  Serious: Yes (Hospitalization)
  Sender: FDA-Public Use
  Company Number: FR-SYMPLMED PHARMACEUTICALS-2014SYM00037

PATIENT
  Age: 90 Year
  Sex: Female

DRUGS (2)
  1. ACEON [Suspect]
     Active Substance: PERINDOPRIL ERBUMINE
     Indication: HYPERTENSION
     Dosage: 4 MG, QD
     Route: 048
     Dates: end: 20140620
  2. TEMERIT [Concomitant]
     Active Substance: NEBIVOLOL
     Indication: PRODUCT USED FOR UNKNOWN INDICATION
     Dosage: UNK

REACTIONS (5)
  - Dehydration [Unknown]
  - Condition aggravated [Unknown]
  - Acute kidney injury [Recovering/Resolving]
  - Hypotension [Unknown]
  - Nausea [Unknown]

NARRATIVE: CASE EVENT DATE: 201406
